FAERS Safety Report 26107603 (Version 1)
Quarter: 2025Q4

REPORT INFORMATION
  Report Type: Spontaneous
  Country: TR (occurrence: TR)
  Receive Date: 20251201
  Receipt Date: 20251201
  Transmission Date: 20260117
  Serious: Yes (Other)
  Sender: AMGEN
  Company Number: TR-AMGEN-TURSP2025236051

PATIENT

DRUGS (3)
  1. ETANERCEPT [Suspect]
     Active Substance: ETANERCEPT
     Indication: Autoinflammatory disease
     Dosage: UNK
     Route: 065
  2. ETANERCEPT [Suspect]
     Active Substance: ETANERCEPT
     Indication: Off label use
     Dosage: UNK
     Route: 065
  3. TOCILIZUMAB [Suspect]
     Active Substance: TOCILIZUMAB
     Indication: Autoinflammatory disease
     Dosage: UNK
     Route: 065

REACTIONS (8)
  - Facial paralysis [Unknown]
  - Seizure [Unknown]
  - Vasogenic cerebral oedema [Unknown]
  - Cytotoxic oedema [Unknown]
  - Autoinflammatory disease [Unknown]
  - Drug ineffective for unapproved indication [Unknown]
  - Infection [Unknown]
  - Off label use [Unknown]
